FAERS Safety Report 9064873 (Version 1)
Quarter: 2013Q1

REPORT INFORMATION
  Report Type: Spontaneous
  Country: US (occurrence: US)
  Receive Date: 20130130
  Receipt Date: 20130130
  Transmission Date: 20140127
  Serious: No
  Sender: FDA-Public Use
  Company Number: US-BAYER-2013-007869

PATIENT
  Age: 83 Year
  Sex: Female
  Weight: 53.06 kg

DRUGS (3)
  1. ALEVE CAPLET/TABLET,MIDOL EXTENDED RELIEF CAPLET [Suspect]
     Dosage: 1 DF, QD
     Route: 048
     Dates: start: 201203
  2. GLUCOSAMINE [Concomitant]
  3. CODEINE [Concomitant]

REACTIONS (3)
  - Foreign body [Recovered/Resolved]
  - Dyspepsia [Recovered/Resolved]
  - Incorrect drug administration duration [None]
